FAERS Safety Report 20714179 (Version 1)
Quarter: 2022Q2

REPORT INFORMATION
  Report Type: Spontaneous
  Country: US (occurrence: None)
  Receive Date: 20220414
  Receipt Date: 20220414
  Transmission Date: 20220721
  Serious: No
  Sender: FDA-Public Use
  Company Number: None

PATIENT
  Age: 17 Year
  Sex: Female

DRUGS (1)
  1. GLATIRAMER ACETATE [Suspect]
     Active Substance: GLATIRAMER ACETATE
     Indication: Multiple sclerosis
     Dosage: OTHER FREQUENCY : OTHER;?
     Route: 058
     Dates: start: 2021, end: 202202

REACTIONS (5)
  - Disease progression [None]
  - Therapy cessation [None]
  - Alopecia [None]
  - Magnetic resonance imaging abnormal [None]
  - Multiple sclerosis [None]

NARRATIVE: CASE EVENT DATE: 20211201
